FAERS Safety Report 4748968-8 (Version None)
Quarter: 2005Q3

REPORT INFORMATION
  Report Type: 
  Country: None (occurrence: None)
  Receive Date: 20050819
  Receipt Date: 20050812
  Transmission Date: 20060218
  Serious: Yes (Hospitalization, Other)
  Sender: FDA-Public Use
  Company Number: US-MERCK-0508USA02618

PATIENT
  Sex: Female
  Weight: 73 kg

DRUGS (7)
  1. VIOXX [Suspect]
     Indication: PAIN
     Route: 048
     Dates: start: 19990805, end: 20040930
  2. DARVOCET-N 100 [Concomitant]
     Route: 065
  3. ASPIRIN [Concomitant]
     Route: 065
  4. ZOCOR [Concomitant]
     Route: 065
  5. FLONASE [Concomitant]
     Route: 065
  6. ZYRTEC [Concomitant]
     Route: 065
  7. PREMARIN [Concomitant]
     Route: 065

REACTIONS (4)
  - ARTHROPATHY [None]
  - CEREBROVASCULAR ACCIDENT [None]
  - HYPERSENSITIVITY [None]
  - TRANSIENT ISCHAEMIC ATTACK [None]
